FAERS Safety Report 25128251 (Version 1)
Quarter: 2025Q1

REPORT INFORMATION
  Report Type: Spontaneous
  Country: JP (occurrence: JP)
  Receive Date: 20250327
  Receipt Date: 20250327
  Transmission Date: 20250408
  Serious: Yes (Other)
  Sender: RK PHARMA
  Company Number: JP-RK PHARMA, INC-20250300041

PATIENT

DRUGS (1)
  1. URSODIOL [Suspect]
     Active Substance: URSODIOL
     Indication: Liver injury
     Route: 065

REACTIONS (2)
  - Liver injury [Recovering/Resolving]
  - Condition aggravated [Recovering/Resolving]
